FAERS Safety Report 18355747 (Version 5)
Quarter: 2021Q3

REPORT INFORMATION
  Report Type: Report from Study
  Country: CA (occurrence: CA)
  Receive Date: 20201007
  Receipt Date: 20210727
  Transmission Date: 20211014
  Serious: Yes (Hospitalization, Other)
  Sender: FDA-Public Use
  Company Number: CA-GLAXOSMITHKLINE-CA2020AMR188727

PATIENT
  Sex: Male
  Weight: 89.7 kg

DRUGS (7)
  1. SALBUTAMOL SULPHATE [Suspect]
     Active Substance: ALBUTEROL SULFATE
     Indication: ASTHMA
     Dosage: 2 PUFF(S), AS NEEDED, 100 MCG
     Route: 055
     Dates: start: 20200401
  2. NICOTINE TRANSDERMAL SYSTEM [Suspect]
     Active Substance: NICOTINE
     Indication: TOBACCO USER
     Dosage: UNK
  3. PREDNISONE. [Suspect]
     Active Substance: PREDNISONE
     Indication: PRODUCT USED FOR UNKNOWN INDICATION
     Dosage: 5 MG
  4. SPIRIVA [Suspect]
     Active Substance: TIOTROPIUM BROMIDE MONOHYDRATE
     Indication: PRODUCT USED FOR UNKNOWN INDICATION
     Dosage: UNK
  5. IBUPROFEN. [Suspect]
     Active Substance: IBUPROFEN
     Indication: PRODUCT USED FOR UNKNOWN INDICATION
     Dosage: UNK, AS NECESSARY
  6. PULMICORT TURBUHALER [Suspect]
     Active Substance: BUDESONIDE
     Indication: PRODUCT USED FOR UNKNOWN INDICATION
     Dosage: 2 PUFF(S), BID
     Route: 055
     Dates: start: 20200401
  7. SYMBICORT [Suspect]
     Active Substance: BUDESONIDE\FORMOTEROL FUMARATE DIHYDRATE
     Indication: PRODUCT USED FOR UNKNOWN INDICATION
     Dosage: 4 PUFF(S), BID, 200MCG/6MCG
     Route: 055
     Dates: start: 20200401

REACTIONS (47)
  - Hospitalisation [Unknown]
  - Bronchiolitis [Unknown]
  - Adenoidectomy [Unknown]
  - Nasal polyps [Unknown]
  - Pulmonary mass [Unknown]
  - Wheezing [Unknown]
  - Increased appetite [Unknown]
  - Asthenia [Unknown]
  - Bronchial wall thickening [Unknown]
  - Mediastinal mass [Unknown]
  - Therapeutic product effect incomplete [Unknown]
  - Palpitations [Unknown]
  - Obstructive airways disorder [Unknown]
  - Atelectasis [Unknown]
  - Dyspnoea exertional [Unknown]
  - Sputum discoloured [Unknown]
  - Pulmonary granuloma [Unknown]
  - Mycobacterial infection [Unknown]
  - Chronic obstructive pulmonary disease [Unknown]
  - Weight increased [Unknown]
  - Dry mouth [Unknown]
  - Gastrooesophageal reflux disease [Unknown]
  - Emphysema [Unknown]
  - Eosinophil count increased [Unknown]
  - Pulmonary eosinophilia [Unknown]
  - Sleep disorder due to a general medical condition [Unknown]
  - Headache [Unknown]
  - Vasculitis [Unknown]
  - Abdominal distension [Unknown]
  - Bronchial secretion retention [Unknown]
  - Idiopathic interstitial pneumonia [Unknown]
  - Tonsillectomy [Unknown]
  - Respiratory disorder [Unknown]
  - Productive cough [Unknown]
  - Loss of personal independence in daily activities [Unknown]
  - Blood count abnormal [Unknown]
  - Umbilical hernia [Unknown]
  - Nasal congestion [Unknown]
  - Lung diffusion disorder [Unknown]
  - Sinus congestion [Unknown]
  - Blood immunoglobulin E increased [Unknown]
  - Asthma [Unknown]
  - Dyspnoea [Unknown]
  - Migraine [Unknown]
  - Nasal oedema [Unknown]
  - Chest discomfort [Unknown]
  - Diaphragmatic disorder [Unknown]
